FAERS Safety Report 4309005-2 (Version None)
Quarter: 2004Q1

REPORT INFORMATION
  Report Type: 
  Country: None (occurrence: None)
  Receive Date: 20040301
  Receipt Date: 20040212
  Transmission Date: 20041129
  Serious: Yes (Other)
  Sender: FDA-Public Use
  Company Number: S04-FRA-00651-01

PATIENT
  Age: 50 Year
  Sex: Female

DRUGS (3)
  1. SEROPRAM (CITALOPRAM HYDROBROMIDE) [Suspect]
     Indication: DEPRESSION
     Dosage: 20 MG QD PO
     Route: 048
  2. CO-TAREG (CO-DIOVAN) (VALSARTAN/HYDROCHLOROTHIAZIDE) [Suspect]
     Indication: HYPERTENSION
  3. VALSARTAN [Suspect]
     Indication: HYPERTENSION

REACTIONS (3)
  - MENORRHAGIA [None]
  - NORMOCHROMIC NORMOCYTIC ANAEMIA [None]
  - PLATELET COUNT INCREASED [None]
